FAERS Safety Report 16248595 (Version 1)
Quarter: 2019Q2

REPORT INFORMATION
  Report Type: Spontaneous
  Country: SG (occurrence: SG)
  Receive Date: 20190429
  Receipt Date: 20190429
  Transmission Date: 20190711
  Serious: Yes (Other)
  Sender: FDA-Public Use
  Company Number: SG-BEH-2019101601

PATIENT

DRUGS (1)
  1. HUMAN FACTOR XIII (INN) [Suspect]
     Active Substance: FACTOR XIII CONCENTRATE (HUMAN)
     Indication: PRODUCT USED FOR UNKNOWN INDICATION
     Dosage: UNK, QMT
     Route: 065

REACTIONS (1)
  - Gingival bleeding [Unknown]
